FAERS Safety Report 8257645-0 (Version None)
Quarter: 2012Q2

REPORT INFORMATION
  Report Type: 
  Country: None (occurrence: None)
  Receive Date: 20120403
  Receipt Date: 20120323
  Transmission Date: 20120825
  Serious: Yes (Other)
  Sender: FDA-Public Use
  Company Number: JP-MERCK-1203USA03623

PATIENT
  Age: 73 Year
  Sex: Female

DRUGS (4)
  1. OLMESARTAN MEDOXOMIL [Concomitant]
     Indication: ESSENTIAL HYPERTENSION
     Route: 048
     Dates: start: 20081212
  2. FOSAMAX [Suspect]
     Indication: OSTEOPOROSIS
     Route: 048
     Dates: end: 20120229
  3. CONIEL [Concomitant]
     Indication: ESSENTIAL HYPERTENSION
     Route: 048
  4. ISOSORBIDE DINITRATE [Concomitant]
     Indication: ESSENTIAL HYPERTENSION
     Route: 061
     Dates: start: 20090701

REACTIONS (1)
  - BONE SWELLING [None]
